FAERS Safety Report 24399808 (Version 1)
Quarter: 2024Q4

REPORT INFORMATION
  Report Type: Report from Study
  Country: US (occurrence: US)
  Receive Date: 20241005
  Receipt Date: 20241005
  Transmission Date: 20250115
  Serious: Yes (Hospitalization)
  Sender: ABBVIE
  Company Number: US-ABBVIE-5949044

PATIENT
  Sex: Female

DRUGS (3)
  1. VENCLEXTA [Suspect]
     Active Substance: VENETOCLAX
     Indication: Acute myeloid leukaemia
     Dosage: 1 TABLET 50MG WITH 2 TABLET 10MG TABLET TOTAL 70 MILLIGRAM
     Route: 048
     Dates: start: 20240321
  2. XOSPATA [Concomitant]
     Active Substance: GILTERITINIB
     Indication: Acute myeloid leukaemia
     Dosage: STRENGHT: 40 MILLIGRAM
     Dates: start: 20240327
  3. POSACONAZOLE [Concomitant]
     Active Substance: POSACONAZOLE
     Indication: Acute myeloid leukaemia
     Dosage: STRENGTH: 100 MILLIGRAM
     Dates: start: 20240329

REACTIONS (1)
  - Large intestine infection [Unknown]

NARRATIVE: CASE EVENT DATE: 20240101
